FAERS Safety Report 7831775-7 (Version None)
Quarter: 2011Q4

REPORT INFORMATION
  Report Type: 
  Country: None (occurrence: None)
  Receive Date: 20111021
  Receipt Date: 20111013
  Transmission Date: 20120403
  Serious: Yes (Hospitalization)
  Sender: FDA-Public Use
  Company Number: PHHO2008DE07625

PATIENT
  Sex: Male

DRUGS (5)
  1. NEORAL [Suspect]
     Indication: RENAL TRANSPLANT
     Dosage: 150 MG, BID
     Route: 048
     Dates: start: 20080315, end: 20080322
  2. NO TREATMENT RECEIVED [Suspect]
     Indication: RENAL TRANSPLANT
  3. PREDNISONE TAB [Suspect]
     Dosage: 10 MG, DAILY
     Route: 048
     Dates: start: 20080320
  4. TACROLIMUS [Concomitant]
     Dosage: UNK
     Dates: start: 20080423, end: 20080426
  5. MYFORTIC [Suspect]
     Indication: RENAL TRANSPLANT
     Dosage: 720 MG, BID
     Route: 048
     Dates: start: 20080201

REACTIONS (8)
  - BLOOD CREATININE INCREASED [None]
  - THROMBOSIS IN DEVICE [None]
  - INTRACRANIAL ANEURYSM [None]
  - RENAL ARTERY STENOSIS [None]
  - HAEMORRHAGE INTRACRANIAL [None]
  - KIDNEY TRANSPLANT REJECTION [None]
  - SUBARACHNOID HAEMORRHAGE [None]
  - DEVICE OCCLUSION [None]
